FAERS Safety Report 24250103 (Version 5)
Quarter: 2025Q1

REPORT INFORMATION
  Report Type: Spontaneous
  Country: TW (occurrence: TW)
  Receive Date: 20240826
  Receipt Date: 20250205
  Transmission Date: 20250408
  Serious: No
  Sender: PFIZER
  Company Number: TW-PFIZER INC-202400236368

PATIENT

DRUGS (1)
  1. BICILLIN L-A [Suspect]
     Active Substance: PENICILLIN G BENZATHINE

REACTIONS (1)
  - Device breakage [Unknown]
